FAERS Safety Report 12730399 (Version 1)
Quarter: 2016Q3

REPORT INFORMATION
  Report Type: Report from Study
  Country: AU (occurrence: AU)
  Receive Date: 20160909
  Receipt Date: 20160909
  Transmission Date: 20161109
  Serious: Yes (Other)
  Sender: FDA-Public Use
  Company Number: AU-REGENERON PHARMACEUTICALS, INC.-2016-21322

PATIENT

DRUGS (3)
  1. EYLEA [Suspect]
     Active Substance: AFLIBERCEPT
     Indication: NEOVASCULAR AGE-RELATED MACULAR DEGENERATION
     Dosage: 2 MG, Q6WK
     Route: 031
     Dates: start: 201602
  2. ENDONE [Concomitant]
     Active Substance: OXYCODONE HYDROCHLORIDE
     Dosage: UNK
  3. OXYCONTIN [Concomitant]
     Active Substance: OXYCODONE HYDROCHLORIDE
     Dosage: UNK

REACTIONS (7)
  - Cholelithiasis [Unknown]
  - Lung neoplasm malignant [Unknown]
  - Liver function test increased [Unknown]
  - Cataract operation [Recovered/Resolved]
  - Bone cancer [Unknown]
  - Peripheral vascular disorder [Unknown]
  - Back pain [Unknown]

NARRATIVE: CASE EVENT DATE: 2016
